FAERS Safety Report 12764887 (Version 4)
Quarter: 2016Q4

REPORT INFORMATION
  Report Type: Report from Study
  Country: JP (occurrence: JP)
  Receive Date: 20160921
  Receipt Date: 20161221
  Transmission Date: 20170207
  Serious: Yes (Death, Life-Threatening)
  Sender: FDA-Public Use
  Company Number: JP-ACTELION-A-CH2016-142443

PATIENT
  Age: 29 Year
  Sex: Female

DRUGS (10)
  1. EPOPROSTENOL ACT [Suspect]
     Active Substance: EPOPROSTENOL
     Dosage: 0.6 NG/KG, PER MIN
     Route: 042
     Dates: start: 20150921
  2. OXYGEN. [Concomitant]
     Active Substance: OXYGEN
  3. EPOPROSTENOL ACT [Suspect]
     Active Substance: EPOPROSTENOL
     Dosage: 0.3 NG/KG, PER MIN
     Route: 042
     Dates: start: 20151007, end: 20151008
  4. EPOPROSTENOL ACT [Suspect]
     Active Substance: EPOPROSTENOL
     Dosage: 0.34 NG/KG, PER MIN
     Route: 042
     Dates: start: 20150919
  5. OPSUMIT [Suspect]
     Active Substance: MACITENTAN
     Dosage: 2.5 MG, OD
     Route: 048
     Dates: start: 20150902, end: 20150903
  6. RIOCIGUAT [Concomitant]
     Active Substance: RIOCIGUAT
     Dosage: UNK
     Dates: end: 20160529
  7. OPSUMIT [Suspect]
     Active Substance: MACITENTAN
     Dosage: 5 MG, OD
     Route: 048
     Dates: start: 20150904, end: 20150909
  8. BERAPROST SODIUM [Concomitant]
     Active Substance: BERAPROST SODIUM
     Dosage: UNK
     Dates: end: 20160529
  9. OPSUMIT [Suspect]
     Active Substance: MACITENTAN
     Indication: PULMONARY ARTERIAL HYPERTENSION
     Dosage: 10 MG, OD
     Route: 048
     Dates: start: 20150910, end: 20160529
  10. EPOPROSTENOL ACT [Suspect]
     Active Substance: EPOPROSTENOL
     Indication: PULMONARY ARTERIAL HYPERTENSION
     Dosage: 1.1 NG/KG, PER MIN
     Route: 042
     Dates: end: 20151008

REACTIONS (11)
  - Pulmonary congestion [Recovered/Resolved]
  - Haematocrit decreased [Recovered/Resolved]
  - Loss of consciousness [Fatal]
  - Cardio-respiratory arrest [Fatal]
  - Red blood cell count decreased [Recovered/Resolved]
  - Anaemia [Recovered/Resolved]
  - Haemoglobin decreased [Recovered/Resolved]
  - Concomitant disease aggravated [Recovered/Resolved]
  - Right ventricular failure [Fatal]
  - Cough [Fatal]
  - Asthenia [Fatal]

NARRATIVE: CASE EVENT DATE: 20150914
